FAERS Safety Report 7933786-X (Version None)
Quarter: 2011Q4

REPORT INFORMATION
  Report Type: 
  Country: None (occurrence: None)
  Receive Date: 20111122
  Receipt Date: 20111115
  Transmission Date: 20120403
  Serious: Yes (Life-Threatening, Hospitalization, Other)
  Sender: FDA-Public Use
  Company Number: GB-GENZYME-CLOF-1001906

PATIENT

DRUGS (3)
  1. SEPTRA [Suspect]
     Indication: PRODUCT USED FOR UNKNOWN INDICATION
     Dosage: UNK
     Route: 065
  2. ALLOPURINOL [Suspect]
     Indication: PRODUCT USED FOR UNKNOWN INDICATION
     Dosage: UNK
     Route: 065
  3. EVOLTRA [Suspect]
     Indication: ACUTE LEUKAEMIA
     Dosage: CYCLE 1
     Route: 065
     Dates: start: 20071001, end: 20071005

REACTIONS (4)
  - PNEUMONIA [None]
  - RASH [None]
  - CARDIAC ARREST [None]
  - FEBRILE NEUTROPENIA [None]
